FAERS Safety Report 5303065-8 (Version None)
Quarter: 2007Q2

REPORT INFORMATION
  Report Type: 
  Country: None (occurrence: None)
  Receive Date: 20070420
  Receipt Date: 20070417
  Transmission Date: 20071010
  Serious: Yes (Other)
  Sender: FDA-Public Use
  Company Number: ZA-AVENTIS-200713376GDDC

PATIENT
  Sex: Female

DRUGS (1)
  1. KETEK [Suspect]
     Dosage: DOSE: UNK
     Route: 048

REACTIONS (2)
  - BLINDNESS [None]
  - VISUAL FIELD DEFECT [None]
